FAERS Safety Report 13420936 (Version 1)
Quarter: 2017Q2

REPORT INFORMATION
  Report Type: Spontaneous
  Country: IT (occurrence: IT)
  Receive Date: 20170410
  Receipt Date: 20170410
  Transmission Date: 20170830
  Serious: Yes (Hospitalization)
  Sender: FDA-Public Use
  Company Number: IT-ROCHE-1918270

PATIENT
  Age: 68 Year
  Sex: Female

DRUGS (5)
  1. MODURETIC 5-50 [Concomitant]
     Active Substance: AMILORIDE HYDROCHLORIDE\HYDROCHLOROTHIAZIDE
  2. ANAFRANIL [Concomitant]
     Active Substance: CLOMIPRAMINE HYDROCHLORIDE
  3. HERCEPTIN [Suspect]
     Active Substance: TRASTUZUMAB
     Indication: BREAST CANCER
     Route: 065
     Dates: start: 20160525, end: 20160824
  4. TAXOL [Suspect]
     Active Substance: PACLITAXEL
     Indication: BREAST CANCER
     Route: 042
     Dates: start: 20151201, end: 20160824
  5. ANASTROZOLE. [Concomitant]
     Active Substance: ANASTROZOLE

REACTIONS (3)
  - Cardiac failure [Recovering/Resolving]
  - Tachyarrhythmia [Recovering/Resolving]
  - Extrasystoles [Recovering/Resolving]

NARRATIVE: CASE EVENT DATE: 20160824
